FAERS Safety Report 8461689-3 (Version None)
Quarter: 2012Q2

REPORT INFORMATION
  Report Type: 
  Country: None (occurrence: None)
  Receive Date: 20120625
  Receipt Date: 20120614
  Transmission Date: 20120825
  Serious: Yes (Other)
  Sender: FDA-Public Use
  Company Number: CA-JNJFOC-20120607735

PATIENT
  Sex: Male

DRUGS (6)
  1. CRESTOR [Concomitant]
     Route: 065
  2. REMICADE [Suspect]
     Indication: RHEUMATOID ARTHRITIS
     Route: 042
     Dates: start: 20000707
  3. METHOTREXATE [Concomitant]
     Route: 065
  4. TENORMIN [Concomitant]
     Route: 065
  5. NORVASC [Concomitant]
     Route: 065
  6. ASPIRIN [Concomitant]
     Route: 065

REACTIONS (1)
  - BIOPSY SKIN [None]
